FAERS Safety Report 6498746-7 (Version None)
Quarter: 2009Q4

REPORT INFORMATION
  Report Type: 
  Country: None (occurrence: None)
  Receive Date: 20091127
  Receipt Date: 20090728
  Transmission Date: 20100525
  Serious: Yes (Other)
  Sender: FDA-Public Use
  Company Number: 289872

PATIENT
  Age: 88 Year
  Sex: Male
  Weight: 69.8 kg

DRUGS (8)
  1. NOVOLOG [Suspect]
     Indication: TYPE 2 DIABETES MELLITUS
     Dosage: 3 IU QAM AND 4 IU QNOON + QPM, SUBCUTANEOUS
     Route: 058
  2. NOVOPEN 3 (INSULIN DELIVERY DEVICE) [Concomitant]
  3. MEVACOR [Concomitant]
  4. COZAAR [Concomitant]
  5. HYDROCHLOROTHIAZIDE [Concomitant]
  6. DILACOR	/00014302/ (VERAPAMIL HYDROCHLORIDE) [Concomitant]
  7. ATENOLOL [Concomitant]
  8. COUMADIN [Concomitant]

REACTIONS (1)
  - BLOOD GLUCOSE DECREASED [None]
